FAERS Safety Report 10411148 (Version 8)
Quarter: 2018Q1

REPORT INFORMATION
  Report Type: Spontaneous
  Country: US (occurrence: US)
  Receive Date: 20140826
  Receipt Date: 20180226
  Transmission Date: 20180508
  Serious: Yes (Hospitalization, Disabling, Other)
  Sender: FDA-Public Use
  Company Number: US-009507513-1408USA010688

PATIENT
  Sex: Female
  Weight: 39 kg

DRUGS (4)
  1. ACTONEL [Concomitant]
     Active Substance: RISEDRONATE SODIUM
     Indication: OSTEOPOROSIS
     Dosage: 35 MG, QW
     Route: 065
     Dates: start: 2008, end: 201101
  2. ALENDRONATE SODIUM. [Suspect]
     Active Substance: ALENDRONATE SODIUM
     Indication: OSTEOPOROSIS
     Dosage: UNK
     Route: 048
     Dates: start: 200802, end: 2011
  3. FOSAMAX PLUS D [Suspect]
     Active Substance: ALENDRONATE SODIUM\CHOLECALCIFEROL
     Indication: OSTEOPOROSIS
     Route: 048
  4. FOSAMAX [Suspect]
     Active Substance: ALENDRONATE SODIUM
     Indication: OSTEOPOROSIS
     Dosage: 70 MG, QW
     Route: 048
     Dates: start: 1997, end: 201101

REACTIONS (38)
  - Anaemia of chronic disease [Unknown]
  - Anxiety [Not Recovered/Not Resolved]
  - Skin abrasion [Unknown]
  - Femoral neck fracture [Recovering/Resolving]
  - Osteopetrosis [Unknown]
  - Abdominal discomfort [Unknown]
  - Hypothyroidism [Unknown]
  - Upper limb fracture [Unknown]
  - Back pain [Not Recovered/Not Resolved]
  - Femur fracture [Recovered/Resolved with Sequelae]
  - Periorbital haemorrhage [Unknown]
  - Fatigue [Unknown]
  - Hyperkalaemia [Unknown]
  - Metabolic acidosis [Not Recovered/Not Resolved]
  - Hand fracture [Unknown]
  - Fall [Unknown]
  - Haemorrhagic anaemia [Recovering/Resolving]
  - Humerus fracture [Recovering/Resolving]
  - Nausea [Unknown]
  - Vomiting [Unknown]
  - Actinic keratosis [Unknown]
  - Malnutrition [Not Recovered/Not Resolved]
  - Gallbladder operation [Unknown]
  - Pain [Unknown]
  - Hysterosalpingo-oophorectomy [Unknown]
  - Wrist fracture [Unknown]
  - Skin cancer [Unknown]
  - Hyponatraemia [Unknown]
  - Fall [Unknown]
  - Gastric disorder [Unknown]
  - Muscle spasms [Unknown]
  - Asthma [Unknown]
  - Chronic kidney disease [Unknown]
  - Depression [Not Recovered/Not Resolved]
  - Depression [Unknown]
  - Anorexia nervosa [Not Recovered/Not Resolved]
  - Chronic obstructive pulmonary disease [Unknown]
  - Gastrooesophageal reflux disease [Unknown]

NARRATIVE: CASE EVENT DATE: 2003
